FAERS Safety Report 21939949 (Version 1)
Quarter: 2023Q1

REPORT INFORMATION
  Report Type: Report from Study
  Country: US (occurrence: US)
  Receive Date: 20230201
  Receipt Date: 20230201
  Transmission Date: 20230417
  Serious: No
  Sender: FDA-Public Use
  Company Number: US-EXELIXIS-CABO-22049291

PATIENT
  Age: 60 Year
  Sex: Male

DRUGS (2)
  1. CABOMETYX [Suspect]
     Active Substance: CABOZANTINIB S-MALATE
     Indication: Hepatic cancer
     Dosage: 60 MG, QD
     Route: 048
     Dates: start: 202202, end: 202203
  2. CABOMETYX [Suspect]
     Active Substance: CABOZANTINIB S-MALATE
     Indication: Cholangiocarcinoma

REACTIONS (3)
  - Faeces discoloured [Recovering/Resolving]
  - Abdominal pain upper [Unknown]
  - Taste disorder [Unknown]

NARRATIVE: CASE EVENT DATE: 20220202
